FAERS Safety Report 5209197-7 (Version None)
Quarter: 2007Q1

REPORT INFORMATION
  Report Type: 
  Country: None (occurrence: None)
  Receive Date: 20070105
  Receipt Date: 20061220
  Transmission Date: 20070707
  Serious: Yes (Other)
  Sender: FDA-Public Use
  Company Number: 200610427BBE

PATIENT
  Age: 46 Year
  Sex: Female

DRUGS (10)
  1. GAMUNEX [Suspect]
     Indication: INFERTILITY
     Dosage: 10 G, INTRAVENOUS, 20 G, ONCE, INTRAVENOUS
     Route: 042
     Dates: start: 20060801
  2. GAMUNEX [Suspect]
     Indication: INFERTILITY
     Dosage: 10 G, INTRAVENOUS, 20 G, ONCE, INTRAVENOUS
     Route: 042
     Dates: start: 20061102
  3. GAMUNEX [Suspect]
     Indication: INFERTILITY
     Dosage: 10 G, INTRAVENOUS, 20 G, ONCE, INTRAVENOUS
     Route: 042
     Dates: start: 20061102
  4. GAMUNEX [Suspect]
  5. ESTROGENS SOL/INJ [Concomitant]
  6. HUMIRA [Concomitant]
  7. DECADRON [Concomitant]
  8. THYROID TAB [Concomitant]
  9. METFORMIN [Concomitant]
  10. ASPIRIN [Concomitant]

REACTIONS (2)
  - HEADACHE [None]
  - PAIN [None]
